FAERS Safety Report 7956846-6 (Version None)
Quarter: 2011Q4

REPORT INFORMATION
  Report Type: 
  Country: None (occurrence: None)
  Receive Date: 20111205
  Receipt Date: 20111106
  Transmission Date: 20120403
  Serious: No
  Sender: FDA-Public Use
  Company Number: US-BAYER-2011-108447

PATIENT
  Sex: Female

DRUGS (3)
  1. MOTRIN [Concomitant]
     Indication: PROCEDURAL PAIN
  2. ALEVE (CAPLET) [Suspect]
     Indication: PROCEDURAL PAIN
     Route: 048
  3. ANTIBIOTICS [Concomitant]
     Indication: POSTOPERATIVE CARE

REACTIONS (2)
  - NAUSEA [None]
  - GASTRITIS [None]
